FAERS Safety Report 16267535 (Version 1)
Quarter: 2019Q2

REPORT INFORMATION
  Report Type: Report from Study
  Country: None (occurrence: US)
  Receive Date: 20190503
  Receipt Date: 20190503
  Transmission Date: 20190711
  Serious: Yes (Hospitalization)
  Sender: FDA-Public Use
  Company Number: US-ABBVIE-19K-163-2765631-00

PATIENT
  Age: 27 Year

DRUGS (1)
  1. HUMIRA [Suspect]
     Active Substance: ADALIMUMAB
     Indication: CROHN^S DISEASE
     Route: 058

REACTIONS (4)
  - Road traffic accident [Unknown]
  - Upper limb fracture [Unknown]
  - Face injury [Unknown]
  - Clavicle fracture [Unknown]

NARRATIVE: CASE EVENT DATE: 20190424
